FAERS Safety Report 24220656 (Version 1)
Quarter: 2024Q3

REPORT INFORMATION
  Report Type: Spontaneous
  Country: AU (occurrence: AU)
  Receive Date: 20240818
  Receipt Date: 20240818
  Transmission Date: 20241017
  Serious: Yes (Hospitalization)
  Sender: CIPLA
  Company Number: AU-CIPLA LTD.-2024AU08734

PATIENT

DRUGS (5)
  1. PREGABALIN [Suspect]
     Active Substance: PREGABALIN
     Indication: Neuropathy peripheral
     Dosage: UNK
     Route: 065
     Dates: start: 20221221, end: 20230502
  2. PREGABALIN [Suspect]
     Active Substance: PREGABALIN
     Dosage: 75 MILLIGRAM
     Route: 065
     Dates: start: 20230501
  3. PREGABALIN [Suspect]
     Active Substance: PREGABALIN
     Dosage: 150 MILLIGRAM
     Route: 065
  4. ZILTIVEKIMAB [Concomitant]
     Active Substance: ZILTIVEKIMAB
     Indication: Arteriosclerosis
     Dosage: 15 MG / ML, ZILTIVEKIMAB B
     Route: 065
     Dates: start: 20220929, end: 20230324
  5. ZILTIVEKIMAB [Concomitant]
     Active Substance: ZILTIVEKIMAB
     Dosage: ZILTIVEKIMAB C, 30 MG/ML
     Route: 065

REACTIONS (2)
  - Overdose [Recovered/Resolved]
  - Tremor [Unknown]

NARRATIVE: CASE EVENT DATE: 20230502
